APPROVED DRUG PRODUCT: TEXACORT
Active Ingredient: HYDROCORTISONE
Strength: 1%
Dosage Form/Route: SOLUTION;TOPICAL
Application: A080425 | Product #001
Applicant: MISSION PHARMACAL CO
Approved: Approved Prior to Jan 1, 1982 | RLD: No | RS: No | Type: DISCN